FAERS Safety Report 5471849-1 (Version None)
Quarter: 2007Q3

REPORT INFORMATION
  Report Type: 
  Country: None (occurrence: None)
  Receive Date: 20070928
  Receipt Date: 20070627
  Transmission Date: 20080115
  Serious: No
  Sender: FDA-Public Use
  Company Number: US-BRISTOL-MYERS SQUIBB COMPANY-13827159

PATIENT
  Sex: Female
  Weight: 113 kg

DRUGS (10)
  1. DEFINITY [Suspect]
     Indication: STRESS ECHOCARDIOGRAM
     Route: 040
  2. KLONOPIN [Concomitant]
  3. LISINOPRIL [Concomitant]
  4. HYDROCHLOROTHIAZIDE [Concomitant]
  5. SYNTHROID [Concomitant]
  6. NORVASC [Concomitant]
  7. TOPROL-XL [Concomitant]
  8. COUMADIN [Concomitant]
  9. METFORMIN [Concomitant]
  10. TAMBOCOR [Concomitant]

REACTIONS (4)
  - BACK PAIN [None]
  - DYSPNOEA [None]
  - HOT FLUSH [None]
  - PAIN IN EXTREMITY [None]
